FAERS Safety Report 22879339 (Version 4)
Quarter: 2023Q4

REPORT INFORMATION
  Report Type: Report from Study
  Country: GB (occurrence: GB)
  Receive Date: 20230829
  Receipt Date: 20231027
  Transmission Date: 20240109
  Serious: Yes (Other)
  Sender: FDA-Public Use
  Company Number: GB-002147023-NVSC2023GB149673

PATIENT
  Age: 62 Year
  Sex: Female

DRUGS (3)
  1. SANDOSTATIN LAR DEPOT [Suspect]
     Active Substance: OCTREOTIDE ACETATE
     Indication: Neoplasm malignant
     Dosage: UNK
     Route: 030
  2. SANDOSTATIN LAR DEPOT [Suspect]
     Active Substance: OCTREOTIDE ACETATE
     Dosage: UNK
     Route: 030
  3. SANDOSTATIN LAR DEPOT [Suspect]
     Active Substance: OCTREOTIDE ACETATE

REACTIONS (12)
  - Seizure [Recovered/Resolved]
  - Cerebrovascular accident [Unknown]
  - Incontinence [Unknown]
  - Lethargy [Unknown]
  - Lower respiratory tract infection [Unknown]
  - Malaise [Unknown]
  - Dysarthria [Unknown]
  - Pain in extremity [Unknown]
  - Oedema peripheral [Unknown]
  - Mobility decreased [Unknown]
  - Abdominal discomfort [Unknown]
  - Hypotension [Unknown]
